FAERS Safety Report 10071685 (Version 2)
Quarter: 2014Q2

REPORT INFORMATION
  Report Type: Spontaneous
  Country: CL (occurrence: CL)
  Receive Date: 20140411
  Receipt Date: 20140411
  Transmission Date: 20141212
  Serious: Yes (Other)
  Sender: FDA-Public Use
  Company Number: CL-PFIZER INC-2014089886

PATIENT
  Age: 95 Year
  Sex: Female

DRUGS (6)
  1. XALATAN [Suspect]
     Indication: GLAUCOMA
     Dosage: 1 GTT, 1X/DAY
     Route: 047
     Dates: start: 2009
  2. CENTRUM [Concomitant]
     Dosage: UNK
     Dates: start: 2011
  3. LOSARTAN [Concomitant]
  4. HYDROCHLOROTHIAZIDE [Concomitant]
  5. NIFEDIPINE [Concomitant]
  6. ATENOLOL [Concomitant]

REACTIONS (4)
  - Hypoacusis [Not Recovered/Not Resolved]
  - Drug dose omission [Unknown]
  - Visual impairment [Unknown]
  - Malaise [Unknown]
